FAERS Safety Report 6203875-9 (Version None)
Quarter: 2009Q2

REPORT INFORMATION
  Report Type: 
  Country: None (occurrence: None)
  Receive Date: 20090527
  Receipt Date: 20090519
  Transmission Date: 20091009
  Serious: Yes (Other)
  Sender: FDA-Public Use
  Company Number: US-B.I. PHARMACEUTICALS,INC./RIDGEFIELD-2009-BP-06265BP

PATIENT
  Sex: Female

DRUGS (10)
  1. SPIRIVA [Suspect]
     Indication: BRONCHITIS CHRONIC
     Dosage: 18MCG
     Route: 055
     Dates: start: 20090515
  2. SPIRIVA [Suspect]
     Indication: ASTHMA
  3. COMBIVENT [Suspect]
     Indication: ASTHMA
     Route: 055
  4. COMBIVENT [Suspect]
     Indication: BRONCHITIS CHRONIC
  5. IPRATROPIUM BROMIDE [Suspect]
     Indication: ASTHMA
     Route: 055
  6. IPRATROPIUM BROMIDE [Suspect]
     Indication: BRONCHITIS CHRONIC
  7. ADVAIR HFA [Concomitant]
     Indication: ASTHMA
     Route: 055
  8. ADVAIR HFA [Concomitant]
     Indication: BRONCHITIS CHRONIC
  9. UNKNOWN ANTIBIOTIC [Concomitant]
     Indication: PNEUMONIA
     Dates: start: 20090504, end: 20090515
  10. NOVA RING [Concomitant]
     Indication: CONTRACEPTION

REACTIONS (3)
  - CHEST PAIN [None]
  - DYSPNOEA [None]
  - VOMITING [None]
